FAERS Safety Report 6112813-9 (Version None)
Quarter: 2009Q1

REPORT INFORMATION
  Report Type: 
  Country: None (occurrence: None)
  Receive Date: 20090312
  Receipt Date: 20090227
  Transmission Date: 20090719
  Serious: Yes (Other)
  Sender: FDA-Public Use
  Company Number: FR-PFIZER INC-2009176704

PATIENT

DRUGS (3)
  1. VORICONAZOLE [Suspect]
     Indication: ASPERGILLOSIS
     Dosage: 200 MG, 2X/DAY
     Route: 042
  2. VANCOMYCIN [Concomitant]
     Indication: STAPHYLOCOCCAL INFECTION
  3. GENTAMYCIN SULFATE [Concomitant]
     Indication: PSEUDOMONAS INFECTION

REACTIONS (1)
  - DRUG RESISTANCE [None]
